FAERS Safety Report 5918039-3 (Version None)
Quarter: 2008Q4

REPORT INFORMATION
  Report Type: 
  Country: None (occurrence: None)
  Receive Date: 20081014
  Receipt Date: 20081006
  Transmission Date: 20090506
  Serious: Yes (Hospitalization)
  Sender: FDA-Public Use
  Company Number: US-ELI_LILLY_AND_COMPANY-US200808006361

PATIENT
  Sex: Female
  Weight: 113.38 kg

DRUGS (4)
  1. BYETTA [Suspect]
     Indication: TYPE 2 DIABETES MELLITUS
     Dosage: 5 UG, 2/D
     Route: 058
     Dates: start: 20070101, end: 20070101
  2. HUMALOG [Concomitant]
     Dosage: UNK, AS NEEDED
     Route: 058
     Dates: start: 20070101, end: 20070101
  3. ACTOS [Concomitant]
     Indication: TYPE 2 DIABETES MELLITUS
     Dosage: 15 MG, AS NEEDED
     Dates: start: 20070101
  4. TYLENOL (CAPLET) [Concomitant]
     Indication: ARTHRITIS
     Dosage: UNK, UNKNOWN
     Route: 048

REACTIONS (3)
  - ARTHRITIS [None]
  - GOUT [None]
  - HYPERGLYCAEMIA [None]
